FAERS Safety Report 21588376 (Version 2)
Quarter: 2022Q4

REPORT INFORMATION
  Report Type: Spontaneous
  Country: US (occurrence: US)
  Receive Date: 20221114
  Receipt Date: 20221114
  Transmission Date: 20230112
  Serious: No
  Sender: FDA-Public Use
  Company Number: US-BIOGEN-2022BI01168195

PATIENT
  Sex: Female

DRUGS (2)
  1. TYSABRI [Suspect]
     Active Substance: NATALIZUMAB
     Indication: Multiple sclerosis
     Route: 050
     Dates: start: 20200930, end: 20211214
  2. TYSABRI [Suspect]
     Active Substance: NATALIZUMAB
     Route: 050

REACTIONS (5)
  - Hemihypoaesthesia [Unknown]
  - Respiratory symptom [Unknown]
  - Visual impairment [Unknown]
  - Face injury [Unknown]
  - Headache [Unknown]

NARRATIVE: CASE EVENT DATE: 20210101
